FAERS Safety Report 5386670-2 (Version None)
Quarter: 2007Q3

REPORT INFORMATION
  Report Type: 
  Country: None (occurrence: None)
  Receive Date: 20070713
  Receipt Date: 20070705
  Transmission Date: 20080115
  Serious: Yes (Hospitalization)
  Sender: FDA-Public Use
  Company Number: GB-ABBOTT-07P-167-0373794-00

PATIENT
  Sex: Male

DRUGS (1)
  1. VALPROATE SODIUM [Suspect]
     Indication: DRUG USE FOR UNKNOWN INDICATION
     Route: 048

REACTIONS (9)
  - ABASIA [None]
  - AGGRESSION [None]
  - CEREBROVASCULAR ACCIDENT [None]
  - DYSPEPSIA [None]
  - DYSPHAGIA [None]
  - EPISTAXIS [None]
  - GOUT [None]
  - HAEMOPTYSIS [None]
  - HEADACHE [None]
